FAERS Safety Report 10057605 (Version 1)
Quarter: 2014Q2

REPORT INFORMATION
  Report Type: Report from Study
  Country: PL (occurrence: PL)
  Receive Date: 20140404
  Receipt Date: 20140404
  Transmission Date: 20141212
  Serious: Yes (Death, Life-Threatening)
  Sender: FDA-Public Use
  Company Number: PL-ABBVIE-14P-129-1218141-00

PATIENT
  Sex: Male
  Weight: 102 kg

DRUGS (10)
  1. DEPAKINE CHRONO [Suspect]
     Indication: EPILEPSY
     Route: 048
     Dates: start: 1998
  2. PERAMPANEL [Suspect]
     Indication: GENERALISED TONIC-CLONIC SEIZURE
     Dosage: DOUBLE BLIND
     Route: 048
     Dates: start: 20130214, end: 20130629
  3. PERAMPANEL [Suspect]
     Dosage: EXTENSION PHASE/CONVERSION PERIOD
     Route: 048
     Dates: start: 20130630, end: 20130705
  4. PERAMPANEL [Suspect]
     Route: 048
     Dates: start: 20130706, end: 20131227
  5. HYDROCHLOROTHIAZIDE [Suspect]
     Indication: HYPERTENSION
     Route: 048
     Dates: start: 20130320
  6. LAMITRIN [Concomitant]
     Indication: EPILEPSY
     Route: 048
     Dates: start: 1998
  7. KEPPRA [Concomitant]
     Indication: EPILEPSY
     Route: 048
     Dates: start: 20120328
  8. METFORMAX [Concomitant]
     Indication: DIABETES MELLITUS
     Route: 048
     Dates: start: 2002
  9. AMARYL [Concomitant]
     Indication: DIABETES MELLITUS
     Route: 048
     Dates: start: 2002
  10. BISOCARD [Concomitant]
     Indication: HYPERTENSION
     Route: 048
     Dates: start: 20130320

REACTIONS (5)
  - Multi-organ failure [Fatal]
  - Status epilepticus [Fatal]
  - Brain oedema [Fatal]
  - Septic shock [Fatal]
  - Pancreatitis acute [Fatal]
